FAERS Safety Report 8925902 (Version 1)
Quarter: 2012Q4

REPORT INFORMATION
  Report Type: 
  Country: US (occurrence: US)
  Receive Date: 20121126
  Receipt Date: 20121126
  Transmission Date: 20130627
  Serious: Yes (Other)
  Sender: FDA-Public Use
  Company Number: PHEH2012US022778

PATIENT
  Sex: Female
  Weight: 58.96 kg

DRUGS (2)
  1. GILENYA [Suspect]
     Dosage: 0.5 mg, QD
     Route: 048
  2. VITAMIN D [Concomitant]
     Dosage: 1000 U, UNK

REACTIONS (3)
  - Central nervous system lesion [Unknown]
  - Intervertebral disc protrusion [Unknown]
  - Dizziness [Unknown]
